FAERS Safety Report 6889175-2 (Version None)
Quarter: 2010Q3

REPORT INFORMATION
  Report Type: 
  Country: None (occurrence: None)
  Receive Date: 20100730
  Receipt Date: 20080109
  Transmission Date: 20110219
  Serious: No
  Sender: FDA-Public Use
  Company Number: US-PFIZER INC-2008003931

PATIENT
  Sex: Male

DRUGS (2)
  1. LIPITOR [Suspect]
  2. DRUG, UNSPECIFIED [Concomitant]
     Indication: THYROID DISORDER

REACTIONS (1)
  - THYROID FUNCTION TEST ABNORMAL [None]
